FAERS Safety Report 12154909 (Version 2)
Quarter: 2016Q2

REPORT INFORMATION
  Report Type: Report from Study
  Country: US (occurrence: US)
  Receive Date: 20160307
  Receipt Date: 20160407
  Transmission Date: 20160815
  Serious: Yes (Other)
  Sender: FDA-Public Use
  Company Number: US-SA-2016SA045246

PATIENT
  Age: 61 Year
  Sex: Male

DRUGS (4)
  1. ALIROCUMAB PREFILLED PEN [Concomitant]
     Active Substance: ALIROCUMAB
     Dates: start: 201511
  2. PRALUENT [Suspect]
     Active Substance: ALIROCUMAB
     Indication: HYPERLIPIDAEMIA
     Route: 058
     Dates: start: 20151212
  3. LIVALO [Concomitant]
     Active Substance: PITAVASTATIN CALCIUM
  4. LIVALO [Concomitant]
     Active Substance: PITAVASTATIN CALCIUM

REACTIONS (4)
  - Blood triglycerides increased [Not Recovered/Not Resolved]
  - Arthralgia [Recovering/Resolving]
  - Blood glucose increased [Not Recovered/Not Resolved]
  - Diabetes mellitus [Not Recovered/Not Resolved]

NARRATIVE: CASE EVENT DATE: 20160225
